FAERS Safety Report 6334653-8 (Version None)
Quarter: 2009Q3

REPORT INFORMATION
  Report Type: 
  Country: None (occurrence: None)
  Receive Date: 20090831
  Receipt Date: 20090826
  Transmission Date: 20100115
  Serious: Yes (Death, Life-Threatening, Hospitalization)
  Sender: FDA-Public Use
  Company Number: FR-ROCHE-652175

PATIENT
  Sex: Male

DRUGS (16)
  1. CAPECITABINE [Suspect]
     Indication: GASTRIC CANCER
     Dosage: DOSE: 16800 MG; IST CYCLE; 3 CURES
     Route: 065
     Dates: start: 20060801
  2. CAPECITABINE [Suspect]
     Dosage: DOSE: 16800 MG, SECOND CYCLE, THREE CURES
     Route: 065
     Dates: start: 20061030
  3. CAPECITABINE [Suspect]
     Dosage: DOSE: 16800 MG, THIRD CYCLE, THREE CURES
     Route: 065
     Dates: start: 20061205
  4. IRINOTECAN HCL [Suspect]
     Indication: GASTRIC CANCER
     Dosage: DOSE: 340 MG, ONE CURE
     Route: 065
     Dates: start: 20070320
  5. EPIRUBICIN HCL [Suspect]
     Indication: GASTRIC CANCER
     Dosage: DOSE: 299 MG, IST CYCLE, 3 CURES
     Route: 065
     Dates: start: 20060801
  6. EPIRUBICIN HCL [Suspect]
     Dosage: DOSE: 297 MG, SECOND CYCLE, THREE CURES
     Route: 065
     Dates: start: 20061030
  7. EPIRUBICIN HCL [Suspect]
     Dosage: DOSE: 294 MG, THIRD CYCLE, THREE CURES
     Route: 065
     Dates: start: 20061205
  8. CISPLATIN [Suspect]
     Indication: GASTRIC CANCER
     Dosage: DOSE: 359 MG, IST CYCLE, 3 CURES
     Route: 065
     Dates: start: 20060801
  9. CISPLATIN [Suspect]
     Dosage: DOSE: 357 MG, SECOND CYCLE, THREE CURES
     Route: 065
     Dates: start: 20061030
  10. CISPLATIN [Suspect]
     Dosage: DOSE: 351 MG, THIRD CYCLE, THREE CURES
     Route: 065
     Dates: start: 20061205
  11. FLUOROURACIL [Suspect]
     Indication: GASTRIC CANCER
     Dosage: FORM: INTRAVENOUS DRIP
     Route: 065
     Dates: start: 20070320
  12. FLUOROURACIL [Suspect]
     Dosage: FORM: INTRAVENOUS BOLUS
     Route: 065
     Dates: start: 20070320
  13. FOLINIC ACID [Suspect]
     Indication: GASTRIC CANCER
     Dosage: DOSE: 760 MG, 1 CURE
     Route: 065
     Dates: start: 20090320
  14. EFFERALGAN [Concomitant]
  15. INIPOMP [Concomitant]
  16. SOLUPRED [Concomitant]

REACTIONS (2)
  - FEBRILE NEUTROPENIA [None]
  - MALIGNANT NEOPLASM PROGRESSION [None]
